FAERS Safety Report 9220900 (Version 1)
Quarter: 2013Q2

REPORT INFORMATION
  Report Type: Report from Study
  Country: JP (occurrence: JP)
  Receive Date: 20130409
  Receipt Date: 20130409
  Transmission Date: 20140414
  Serious: Yes (Disabling)
  Sender: FDA-Public Use
  Company Number: JP-GLAXOSMITHKLINE-B0660592A

PATIENT
  Age: 62 Year
  Sex: Female
  Weight: 55 kg

DRUGS (9)
  1. TYKERB [Suspect]
     Indication: BREAST CANCER
     Route: 048
     Dates: start: 20100106, end: 20100324
  2. TYKERB [Suspect]
     Indication: BREAST CANCER
     Route: 048
     Dates: start: 20100527, end: 20100707
  3. TYKERB [Suspect]
     Indication: BREAST CANCER
     Route: 048
     Dates: start: 20100708, end: 20100818
  4. XELODA [Suspect]
     Route: 048
     Dates: start: 20100106, end: 20100310
  5. XELODA [Suspect]
     Route: 048
     Dates: start: 20100527, end: 20100630
  6. XELODA [Suspect]
     Route: 048
     Dates: start: 20100708, end: 20100818
  7. ADALAT L [Concomitant]
     Indication: HYPERTENSION
     Route: 048
  8. CONSTAN [Concomitant]
     Indication: ANXIETY DISORDER
     Route: 048
  9. PYDOXAL [Concomitant]
     Indication: PALMAR-PLANTAR ERYTHRODYSAESTHESIA SYNDROME
     Route: 048
     Dates: start: 20100106, end: 20100818

REACTIONS (5)
  - Gastric ulcer [Recovering/Resolving]
  - Palmar-plantar erythrodysaesthesia syndrome [Recovered/Resolved]
  - Diarrhoea [Recovering/Resolving]
  - Blood bilirubin increased [Recovered/Resolved]
  - Acne [Recovered/Resolved]
